FAERS Safety Report 18248575 (Version 1)
Quarter: 2020Q3

REPORT INFORMATION
  Report Type: Spontaneous
  Country: FR (occurrence: FR)
  Receive Date: 20200909
  Receipt Date: 20200909
  Transmission Date: 20201103
  Serious: Yes (Hospitalization)
  Sender: FDA-Public Use
  Company Number: FR-MYLANLABS-2020M1076445

PATIENT
  Age: 37 Year
  Sex: Male

DRUGS (3)
  1. TRANXENE [Suspect]
     Active Substance: CLORAZEPATE DIPOTASSIUM
     Indication: POISONING DELIBERATE
     Dosage: 750 MILLIGRAM, TOTAL
     Route: 048
     Dates: start: 20200730, end: 20200730
  2. DIPIPERON [Suspect]
     Active Substance: PIPAMPERONE
     Indication: POISONING DELIBERATE
     Dosage: 750 MILLIGRAM, TOTAL
     Route: 048
     Dates: start: 20200730, end: 20200730
  3. ALPRAZOLAM. [Suspect]
     Active Substance: ALPRAZOLAM
     Indication: POISONING DELIBERATE
     Dosage: 5 MILLIGRAM, TOTAL
     Route: 048
     Dates: start: 20200730, end: 20200730

REACTIONS (1)
  - Depressed level of consciousness [Recovered/Resolved]

NARRATIVE: CASE EVENT DATE: 20200730
